FAERS Safety Report 4827863-X (Version None)
Quarter: 2005Q4

REPORT INFORMATION
  Report Type: 
  Country: None (occurrence: None)
  Receive Date: 20051114
  Receipt Date: 20051114
  Transmission Date: 20060501
  Serious: Yes (Hospitalization)
  Sender: FDA-Public Use
  Company Number: None

PATIENT
  Age: 44 Year
  Sex: Male

DRUGS (1)
  1. SULFADIAZINE [Suspect]
     Indication: URINARY TRACT INFECTION
     Dosage: 1 GRAM   Q6H   PO
     Route: 048
     Dates: start: 20051003, end: 20051030

REACTIONS (1)
  - NEPHROLITHIASIS [None]
